FAERS Safety Report 6243973-7 (Version None)
Quarter: 2009Q2

REPORT INFORMATION
  Report Type: 
  Country: None (occurrence: None)
  Receive Date: 20090623
  Receipt Date: 20090609
  Transmission Date: 20091009
  Serious: Yes (Hospitalization)
  Sender: FDA-Public Use
  Company Number: TRP_06280_2009

PATIENT
  Age: 47 Year
  Sex: Female

DRUGS (4)
  1. RIBAVIRIN [Suspect]
     Indication: HEPATITIS C
     Dosage: DF
     Dates: start: 20030101
  2. PEGYLATED-INTERFERON-ALFA [Suspect]
     Indication: HEPATITIS C
     Dosage: DF
     Dates: start: 20030101
  3. RISPERIDONE [Concomitant]
  4. DIVALPROEX SODIUM [Concomitant]

REACTIONS (4)
  - AGITATION [None]
  - DELUSION OF GRANDEUR [None]
  - HALLUCINATIONS, MIXED [None]
  - MANIA [None]
